FAERS Safety Report 16289748 (Version 1)
Quarter: 2019Q2

REPORT INFORMATION
  Report Type: Spontaneous
  Country: US (occurrence: US)
  Receive Date: 20190509
  Receipt Date: 20190509
  Transmission Date: 20190711
  Serious: Yes (Other)
  Sender: FDA-Public Use
  Company Number: US-009507513-1905USA002870

PATIENT
  Sex: Female

DRUGS (1)
  1. NEXPLANON [Suspect]
     Active Substance: ETONOGESTREL
     Indication: CONTRACEPTION
     Dosage: 68 MILLIGRAM (REPORTED AS 68 MG, QD)
     Route: 059
     Dates: start: 2018, end: 20190415

REACTIONS (3)
  - Emotional disorder [Unknown]
  - Weight increased [Unknown]
  - Uterine haemorrhage [Unknown]

NARRATIVE: CASE EVENT DATE: 2018
